FAERS Safety Report 8791234 (Version 1)
Quarter: 2012Q4

REPORT INFORMATION
  Report Type: Spontaneous
  Country: US (occurrence: None)
  Receive Date: 20120914
  Receipt Date: 20120914
  Transmission Date: 20130627
  Serious: Yes (Hospitalization)
  Sender: FDA-Public Use
  Company Number: None

PATIENT
  Age: 72 Year
  Sex: Female
  Weight: 81.2 kg

DRUGS (9)
  1. QUINAPRIL [Suspect]
     Indication: HYPERTENSION
     Dosage: 40 mg daily Oral
     Route: 048
  2. OMEPRAZOLE [Concomitant]
  3. NIFEDIPINE [Concomitant]
  4. NITROGLYCERIN [Concomitant]
  5. HYDROCHLAROTHIAZIDE [Concomitant]
  6. INDAPAMIDE [Concomitant]
  7. TOPROLOL XL [Concomitant]
  8. POTASSIUM CHLORIDE [Concomitant]
  9. ROSUVASTATIN [Concomitant]

REACTIONS (4)
  - Swelling [None]
  - Swollen tongue [None]
  - Aphasia [None]
  - Local swelling [None]
